FAERS Safety Report 14323612 (Version 1)
Quarter: 2017Q4

REPORT INFORMATION
  Report Type: Report from Study
  Country: FR (occurrence: FR)
  Receive Date: 20171226
  Receipt Date: 20171226
  Transmission Date: 20180321
  Serious: Yes (Hospitalization)
  Sender: FDA-Public Use
  Company Number: FR-ROCHE-2041284

PATIENT
  Age: 37 Year
  Sex: Female
  Weight: 58.8 kg

DRUGS (61)
  1. ARAVA [Concomitant]
     Active Substance: LEFLUNOMIDE
     Route: 065
     Dates: start: 20111207
  2. TOCILIZUMAB. [Suspect]
     Active Substance: TOCILIZUMAB
     Indication: RHEUMATOID ARTHRITIS
     Dosage: 8.16 MG/KG
     Route: 041
     Dates: start: 20100630
  3. TOCILIZUMAB. [Suspect]
     Active Substance: TOCILIZUMAB
     Route: 041
     Dates: start: 20101104
  4. TOCILIZUMAB. [Suspect]
     Active Substance: TOCILIZUMAB
     Route: 041
     Dates: start: 20110601
  5. TOCILIZUMAB. [Suspect]
     Active Substance: TOCILIZUMAB
     Route: 041
     Dates: start: 20121121
  6. TOCILIZUMAB. [Suspect]
     Active Substance: TOCILIZUMAB
     Route: 041
     Dates: start: 20121219
  7. TOCILIZUMAB. [Suspect]
     Active Substance: TOCILIZUMAB
     Route: 041
     Dates: start: 20130605
  8. CORTANCYL [Suspect]
     Active Substance: PREDNISONE
     Indication: RHEUMATOID ARTHRITIS
     Route: 065
     Dates: start: 201005
  9. TOCILIZUMAB. [Suspect]
     Active Substance: TOCILIZUMAB
     Route: 041
     Dates: start: 20120704
  10. TOCILIZUMAB. [Suspect]
     Active Substance: TOCILIZUMAB
     Route: 041
     Dates: start: 20120926
  11. TOCILIZUMAB. [Suspect]
     Active Substance: TOCILIZUMAB
     Route: 041
     Dates: start: 20150513
  12. CORTANCYL [Suspect]
     Active Substance: PREDNISONE
     Route: 065
     Dates: start: 20110105
  13. ROCGEL [Concomitant]
  14. CYMBALTA [Concomitant]
     Active Substance: DULOXETINE HYDROCHLORIDE
     Dosage: 60 ONCE A DAY
     Route: 065
  15. SALAZOPRIN [Concomitant]
     Route: 065
  16. TOCILIZUMAB. [Suspect]
     Active Substance: TOCILIZUMAB
     Route: 041
     Dates: start: 20110202
  17. TOCILIZUMAB. [Suspect]
     Active Substance: TOCILIZUMAB
     Route: 041
     Dates: start: 20130315
  18. TOCILIZUMAB. [Suspect]
     Active Substance: TOCILIZUMAB
     Route: 041
     Dates: start: 20130829
  19. TOCILIZUMAB. [Suspect]
     Active Substance: TOCILIZUMAB
     Route: 041
     Dates: start: 20140604
  20. SPECIAFOLDINE [Concomitant]
     Active Substance: FOLIC ACID
     Route: 065
  21. ULCAR (FRANCE) [Concomitant]
     Route: 065
  22. CACIT D3 [Concomitant]
     Active Substance: CALCIUM\CHOLECALCIFEROL
  23. PLAQUENIL [Concomitant]
     Active Substance: HYDROXYCHLOROQUINE SULFATE
  24. TOCILIZUMAB. [Suspect]
     Active Substance: TOCILIZUMAB
     Route: 041
     Dates: start: 20110302
  25. TOCILIZUMAB. [Suspect]
     Active Substance: TOCILIZUMAB
     Route: 041
     Dates: start: 20110330
  26. TOCILIZUMAB. [Suspect]
     Active Substance: TOCILIZUMAB
     Route: 041
     Dates: start: 20110627
  27. TOCILIZUMAB. [Suspect]
     Active Substance: TOCILIZUMAB
     Route: 041
     Dates: start: 20110725
  28. TOCILIZUMAB. [Suspect]
     Active Substance: TOCILIZUMAB
     Route: 041
     Dates: start: 20110831
  29. TOCILIZUMAB. [Suspect]
     Active Substance: TOCILIZUMAB
     Route: 041
     Dates: start: 20111109
  30. TOCILIZUMAB. [Suspect]
     Active Substance: TOCILIZUMAB
     Route: 041
     Dates: start: 20111207
  31. TOCILIZUMAB. [Suspect]
     Active Substance: TOCILIZUMAB
     Route: 041
     Dates: start: 20130116
  32. OROCAL D3 [Concomitant]
     Active Substance: CALCIUM CARBONATE\CHOLECALCIFEROL
     Route: 065
  33. DAFALGAN [Concomitant]
     Active Substance: ACETAMINOPHEN
     Route: 065
  34. TOCILIZUMAB. [Suspect]
     Active Substance: TOCILIZUMAB
     Route: 041
     Dates: start: 20120411
  35. TOCILIZUMAB. [Suspect]
     Active Substance: TOCILIZUMAB
     Route: 041
     Dates: start: 20120830
  36. TOCILIZUMAB. [Suspect]
     Active Substance: TOCILIZUMAB
     Route: 041
     Dates: start: 20130410
  37. KALEORID [Concomitant]
     Active Substance: POTASSIUM CHLORIDE
     Route: 065
  38. TOCILIZUMAB. [Suspect]
     Active Substance: TOCILIZUMAB
     Route: 041
     Dates: start: 20110427
  39. TOCILIZUMAB. [Suspect]
     Active Substance: TOCILIZUMAB
     Route: 041
     Dates: start: 20140702
  40. INEXIUM [Concomitant]
     Active Substance: ESOMEPRAZOLE
     Route: 065
  41. TOCILIZUMAB. [Suspect]
     Active Substance: TOCILIZUMAB
     Route: 041
     Dates: start: 20110105
  42. TOCILIZUMAB. [Suspect]
     Active Substance: TOCILIZUMAB
     Route: 041
     Dates: start: 20120104
  43. TOCILIZUMAB. [Suspect]
     Active Substance: TOCILIZUMAB
     Route: 041
     Dates: start: 20120222
  44. TOCILIZUMAB. [Suspect]
     Active Substance: TOCILIZUMAB
     Route: 041
     Dates: start: 20120606
  45. TOCILIZUMAB. [Suspect]
     Active Substance: TOCILIZUMAB
     Route: 041
     Dates: start: 20120801
  46. TOCILIZUMAB. [Suspect]
     Active Substance: TOCILIZUMAB
     Route: 041
     Dates: start: 20130213
  47. TOCILIZUMAB. [Suspect]
     Active Substance: TOCILIZUMAB
     Route: 041
     Dates: start: 20130510
  48. TOCILIZUMAB. [Suspect]
     Active Substance: TOCILIZUMAB
     Route: 041
     Dates: start: 20140730
  49. METHOTREXATE. [Concomitant]
     Active Substance: METHOTREXATE
     Indication: RHEUMATOID ARTHRITIS
     Route: 065
  50. TOCILIZUMAB. [Suspect]
     Active Substance: TOCILIZUMAB
     Route: 041
     Dates: start: 20101208
  51. TOCILIZUMAB. [Suspect]
     Active Substance: TOCILIZUMAB
     Route: 041
     Dates: start: 20111005
  52. TOCILIZUMAB. [Suspect]
     Active Substance: TOCILIZUMAB
     Route: 041
     Dates: start: 20120104
  53. TOCILIZUMAB. [Suspect]
     Active Substance: TOCILIZUMAB
     Route: 041
     Dates: start: 20120509
  54. TOCILIZUMAB. [Suspect]
     Active Substance: TOCILIZUMAB
     Route: 041
     Dates: start: 20121024
  55. TOCILIZUMAB. [Suspect]
     Active Substance: TOCILIZUMAB
     Route: 041
     Dates: start: 20130704
  56. CORTANCYL [Suspect]
     Active Substance: PREDNISONE
     Route: 065
     Dates: start: 20110627
  57. CORTANCYL [Suspect]
     Active Substance: PREDNISONE
     Route: 065
     Dates: start: 20120104
  58. CORTANCYL [Suspect]
     Active Substance: PREDNISONE
     Route: 065
     Dates: start: 20120104
  59. KALEORID LP [Concomitant]
     Active Substance: POTASSIUM CHLORIDE
     Route: 065
  60. LEVOTHYROX [Concomitant]
     Active Substance: LEVOTHYROXINE
     Route: 065
  61. UVEDOSE [Concomitant]
     Active Substance: CHOLECALCIFEROL
     Route: 065

REACTIONS (4)
  - Pyrexia [Recovered/Resolved]
  - Cough [Recovered/Resolved]
  - Thrombocytopenia [Recovered/Resolved]
  - Febrile neutropenia [Recovered/Resolved]

NARRATIVE: CASE EVENT DATE: 20120201
